FAERS Safety Report 6571433-2 (Version None)
Quarter: 2010Q1

REPORT INFORMATION
  Report Type: 
  Country: None (occurrence: None)
  Receive Date: 20100205
  Receipt Date: 20100127
  Transmission Date: 20100710
  Serious: Yes (Hospitalization)
  Sender: FDA-Public Use
  Company Number: FR-PFIZER INC-2010011038

PATIENT
  Age: 56 Year
  Sex: Female

DRUGS (4)
  1. CAMPTOSAR [Suspect]
     Indication: GLIOBLASTOMA
     Dosage: 125 MG/M2, (200 MG ONCE EVERY 2 WEEKS)
     Route: 042
     Dates: start: 20091008, end: 20091022
  2. MEDROL [Suspect]
     Dosage: UNK
     Route: 048
     Dates: start: 20091001
  3. AVASTIN [Suspect]
     Indication: GLIOBLASTOMA
     Dosage: 25MG/ML; 10MG/M2 (580 MG, ONCE EVERY 2 WEEKS)
     Route: 042
     Dates: start: 20091008, end: 20091022
  4. ONDANSETRON HCL [Concomitant]
     Indication: PROPHYLACTIC CHEMOTHERAPY
     Dosage: 8 MG/4ML

REACTIONS (1)
  - LARGE INTESTINE PERFORATION [None]
